FAERS Safety Report 13997742 (Version 1)
Quarter: 2017Q3

REPORT INFORMATION
  Report Type: Spontaneous
  Country: US (occurrence: US)
  Receive Date: 20170921
  Receipt Date: 20170921
  Transmission Date: 20171128
  Serious: Yes (Other)
  Sender: FDA-Public Use
  Company Number: PHEH2017US029459

PATIENT
  Age: 53 Year
  Sex: Male

DRUGS (1)
  1. DUREZOL [Suspect]
     Active Substance: DIFLUPREDNATE
     Indication: PRODUCT USED FOR UNKNOWN INDICATION
     Dosage: UNK UNK, QID
     Route: 047
     Dates: start: 20170807

REACTIONS (6)
  - Eye inflammation [Unknown]
  - Corneal scar [Unknown]
  - Visual impairment [Unknown]
  - Eye irritation [Unknown]
  - Photophobia [Unknown]
  - Herpes ophthalmic [Unknown]

NARRATIVE: CASE EVENT DATE: 201708
